FAERS Safety Report 9417208 (Version 1)
Quarter: 2013Q3

REPORT INFORMATION
  Report Type: Spontaneous
  Country: GB (occurrence: BR)
  Receive Date: 20130724
  Receipt Date: 20130724
  Transmission Date: 20140515
  Serious: Yes (Hospitalization)
  Sender: FDA-Public Use
  Company Number: GB-MERCK-1307BRA013519

PATIENT
  Sex: Male

DRUGS (2)
  1. SAPHRIS [Suspect]
     Indication: SCHIZOPHRENIA
     Dosage: UNK
     Route: 048
  2. ORAP [Concomitant]
     Indication: SCHIZOPHRENIA
     Dosage: UNK

REACTIONS (3)
  - Hospitalisation [Unknown]
  - Psychiatric symptom [Not Recovered/Not Resolved]
  - Psychiatric symptom [Not Recovered/Not Resolved]
